FAERS Safety Report 5600796-7 (Version None)
Quarter: 2008Q1

REPORT INFORMATION
  Report Type: 
  Country: None (occurrence: None)
  Receive Date: 20080123
  Receipt Date: 20080114
  Transmission Date: 20080703
  Serious: Yes (Life-Threatening, Hospitalization)
  Sender: FDA-Public Use
  Company Number: FR-PFIZER INC-2008004315

PATIENT
  Sex: Female

DRUGS (5)
  1. EPIRUBICIN HYDROCHLORIDE [Suspect]
     Route: 042
     Dates: start: 20011205, end: 20020411
  2. CYCLOPHOSPHAMIDE [Suspect]
     Route: 042
     Dates: start: 20011205, end: 20060418
  3. FLUOROURACIL [Suspect]
     Route: 042
     Dates: start: 20011205, end: 20020411
  4. DOXORUBICIN HCL [Suspect]
     Dates: start: 20051104, end: 20060418
  5. RITUXIMAB [Suspect]
     Dates: start: 20051104, end: 20060622

REACTIONS (1)
  - PELIOSIS HEPATIS [None]
